FAERS Safety Report 5628704-3 (Version None)
Quarter: 2008Q1

REPORT INFORMATION
  Report Type: 
  Country: None (occurrence: None)
  Receive Date: 20080215
  Receipt Date: 20080204
  Transmission Date: 20080703
  Serious: Yes (Other)
  Sender: FDA-Public Use
  Company Number: US-PFIZER INC-2008012414

PATIENT
  Sex: Female
  Weight: 74.8 kg

DRUGS (3)
  1. DILANTIN [Suspect]
     Indication: CONVULSION
  2. DILANTIN [Suspect]
  3. DIAZEPAM [Concomitant]

REACTIONS (3)
  - CONVULSION [None]
  - EPILEPTIC AURA [None]
  - PHARMACEUTICAL PRODUCT COMPLAINT [None]
